FAERS Safety Report 24436668 (Version 1)
Quarter: 2024Q4

REPORT INFORMATION
  Report Type: Spontaneous
  Country: US (occurrence: US)
  Receive Date: 20241015
  Receipt Date: 20241015
  Transmission Date: 20250115
  Serious: No
  Sender: ROCHE
  Company Number: US-ROCHE-10000100897

PATIENT
  Age: 59 Year
  Sex: Male

DRUGS (10)
  1. BEVACIZUMAB [Suspect]
     Active Substance: BEVACIZUMAB
     Indication: Choroidal neovascularisation
     Route: 050
  2. PREDNISONE [Concomitant]
     Active Substance: PREDNISONE
     Route: 048
  3. TOCILIZUMAB [Concomitant]
     Active Substance: TOCILIZUMAB
  4. CEFTRIAXONE [Concomitant]
     Active Substance: CEFTRIAXONE
     Indication: Whipple^s disease
     Route: 042
  5. SULFAMETHOXAZOLE\TRIMETHOPRIM [Concomitant]
     Active Substance: SULFAMETHOXAZOLE\TRIMETHOPRIM
     Route: 048
  6. VANCOMYCIN [Concomitant]
     Active Substance: VANCOMYCIN
     Route: 050
  7. DOXYCYCLINE [Concomitant]
     Active Substance: DOXYCYCLINE
  8. HYDROXYCHLOROQUINE [Concomitant]
     Active Substance: HYDROXYCHLOROQUINE
  9. CEFTAZIDIME [Concomitant]
     Active Substance: CEFTAZIDIME
     Route: 050
  10. RIFAMPIN [Concomitant]
     Active Substance: RIFAMPIN

REACTIONS (3)
  - Off label use [Unknown]
  - Off label use [Unknown]
  - No adverse event [Unknown]
